FAERS Safety Report 9737162 (Version 2)
Quarter: 2014Q1

REPORT INFORMATION
  Report Type: Spontaneous
  Country: US (occurrence: US)
  Receive Date: 20131206
  Receipt Date: 20140114
  Transmission Date: 20141002
  Serious: Yes (Death)
  Sender: FDA-Public Use
  Company Number: US-ROCHE-1312917

PATIENT
  Age: 61 Year
  Sex: Female

DRUGS (1)
  1. XOLAIR [Suspect]
     Indication: ASTHMA
     Dosage: 150MG OF 1.2ML VIAL 300MG
     Route: 058
     Dates: start: 201101

REACTIONS (4)
  - Death [Fatal]
  - Ill-defined disorder [Unknown]
  - Pain [Unknown]
  - Spinal compression fracture [Unknown]
